FAERS Safety Report 6431354-2 (Version None)
Quarter: 2009Q4

REPORT INFORMATION
  Report Type: 
  Country: None (occurrence: None)
  Receive Date: 20091105
  Receipt Date: 20091105
  Transmission Date: 20100525
  Serious: Yes (Death, Life-Threatening, Hospitalization)
  Sender: FDA-Public Use
  Company Number: None

PATIENT
  Age: 55 Year
  Sex: Male
  Weight: 136.0791 kg

DRUGS (3)
  1. HEPARIN [Suspect]
     Indication: MYELOID LEUKAEMIA
     Dosage: 5 ML FILL 2 X A DAY 0.9 SODIM CHLORIDE FOR LABS
     Dates: start: 20071101, end: 20071111
  2. HEPARIN [Suspect]
  3. HEPARIN [Suspect]

REACTIONS (7)
  - CHILLS [None]
  - DYSPNOEA [None]
  - GENERAL PHYSICAL HEALTH DETERIORATION [None]
  - MOUTH HAEMORRHAGE [None]
  - PYREXIA [None]
  - TACHYCARDIA [None]
  - TRISMUS [None]
